FAERS Safety Report 7440860-3 (Version None)
Quarter: 2011Q2

REPORT INFORMATION
  Report Type: 
  Country: None (occurrence: None)
  Receive Date: 20110427
  Receipt Date: 20100108
  Transmission Date: 20111010
  Serious: Yes (Death, Other)
  Sender: FDA-Public Use
  Company Number: US-BAYER-201010454NA

PATIENT
  Age: 77 Year
  Sex: Male
  Weight: 79.365 kg

DRUGS (36)
  1. TRASYLOL [Suspect]
     Indication: AORTIC ANEURYSM REPAIR
     Dosage: 2 MILLION KIU BOLUS
     Route: 042
     Dates: start: 20070725, end: 20070725
  2. ALDACTONE [Concomitant]
     Route: 048
  3. EPOGEN [Concomitant]
     Route: 058
  4. LEVAQUIN [Concomitant]
     Route: 048
  5. PROTAMINE SULFATE [Concomitant]
     Dosage: 275 MG, UNK
     Route: 042
     Dates: start: 20070725
  6. ZOSYN [Concomitant]
  7. ZYVOX [Concomitant]
  8. METOPROLOL [Concomitant]
     Dosage: 25 MG, BID
     Route: 048
  9. GLYBURIDE [Concomitant]
     Dosage: 1.25 MG, QD
     Route: 048
  10. VANCOMYCIN [Concomitant]
     Dosage: 2000 MG, UNK
     Route: 042
     Dates: start: 20070725
  11. EPINEPHRINE [Concomitant]
     Dosage: 8 MCG
     Route: 042
     Dates: start: 20070725
  12. RED BLOOD CELLS, CONCENTRATED [Concomitant]
     Dosage: 4 U, UNK
     Dates: start: 20070725
  13. TRASYLOL [Suspect]
     Indication: AORTIC VALVE REPLACEMENT
     Dosage: 50 ML /HOUR INFUSION
     Dates: start: 20070725, end: 20070725
  14. INSULIN 2 [Concomitant]
     Dosage: 22 ML, UNK
     Dates: start: 20070725
  15. PLATELETS [Concomitant]
     Dosage: 2 U, UNK
     Dates: start: 20070725
  16. TRASYLOL [Suspect]
     Indication: MITRAL VALVE REPAIR
  17. TRASYLOL [Suspect]
     Indication: AORTIC BYPASS
  18. HEPARIN [Concomitant]
  19. PRILOSEC [Concomitant]
     Dosage: 20 MG, QD
  20. FINASTERIDE [Concomitant]
     Dosage: 5 MG, QD
     Route: 048
  21. AQUA LACTEN [Concomitant]
     Route: 048
  22. TOPROL-XL [Concomitant]
     Dosage: 50 MG, UNK
     Route: 048
  23. FRESH FROZEN PLASMA [Concomitant]
     Dosage: 2 U, UNK
     Dates: start: 20070725
  24. HEPARIN [Concomitant]
  25. TRAZODONE [Concomitant]
     Route: 048
  26. PROSCAR [Concomitant]
     Dosage: UNK UNK, QD
     Route: 048
  27. AMIODARONE [Concomitant]
     Route: 048
  28. LEXAPRO [Concomitant]
     Route: 048
  29. CEPHALOTHIN [Concomitant]
     Dosage: 4000 MG, UNK
     Route: 042
     Dates: start: 20070725
  30. VASOPRESSIN [LYPRESSIN] [Concomitant]
  31. FLUCONAZOLE [Concomitant]
  32. SEROQUEL [Concomitant]
     Route: 048
  33. HEPARIN [Concomitant]
     Dosage: 43000 U, UNK
     Route: 042
     Dates: start: 20070725
  34. AMIODARONE [Concomitant]
     Dosage: 300 MG, UNK
     Dates: start: 20070725
  35. TYGACIL [Concomitant]
  36. FLAGYL [Concomitant]

REACTIONS (12)
  - STRESS [None]
  - RENAL FAILURE [None]
  - EMOTIONAL DISTRESS [None]
  - ANXIETY [None]
  - ANHEDONIA [None]
  - INJURY [None]
  - RENAL IMPAIRMENT [None]
  - RENAL INJURY [None]
  - FEAR [None]
  - PAIN [None]
  - DEATH [None]
  - UNEVALUABLE EVENT [None]
